FAERS Safety Report 24198240 (Version 1)
Quarter: 2024Q3

REPORT INFORMATION
  Report Type: Spontaneous
  Country: CA (occurrence: CA)
  Receive Date: 20240812
  Receipt Date: 20240812
  Transmission Date: 20241016
  Serious: Yes (Other)
  Sender: CELLTRION
  Company Number: CA-PFIZER INC-202400230743

PATIENT

DRUGS (3)
  1. INFLECTRA [Suspect]
     Active Substance: INFLIXIMAB-DYYB
     Indication: Rheumatoid arthritis
     Dosage: 5 MG/KG, INDUCTION W0,2,6 THEN Q8 WEEKS
     Route: 042
     Dates: start: 20240607
  2. INFLECTRA [Suspect]
     Active Substance: INFLIXIMAB-DYYB
     Dosage: 315 MG, EVERY 8 WEEKS ,(5 MG/KG, INDUCTION W0,2,6 THEN Q8 WEEKS)
     Route: 042
     Dates: start: 20240802
  3. METHOTREXATE [Concomitant]
     Active Substance: METHOTREXATE
     Dosage: 15 MG, WEEKLY
     Route: 065

REACTIONS (1)
  - Lipoma [Recovering/Resolving]

NARRATIVE: CASE EVENT DATE: 20240101
